FAERS Safety Report 5441611-4 (Version None)
Quarter: 2007Q3

REPORT INFORMATION
  Report Type: 
  Country: None (occurrence: None)
  Receive Date: 20070904
  Receipt Date: 20070829
  Transmission Date: 20080115
  Serious: Yes (Other)
  Sender: FDA-Public Use
  Company Number: AT-ASTRAZENECA-2007PK01791

PATIENT
  Age: 27828 Day
  Sex: Female

DRUGS (2)
  1. ARIMIDEX [Suspect]
     Indication: BREAST CANCER
     Route: 048
     Dates: start: 20060209, end: 20070209
  2. PARKEMED [Concomitant]
     Indication: PAIN MANAGEMENT
     Route: 048

REACTIONS (2)
  - FALL [None]
  - ULNA FRACTURE [None]
